FAERS Safety Report 8392343-4 (Version None)
Quarter: 2012Q1

REPORT INFORMATION
  Report Type: 
  Country: None (occurrence: None)
  Receive Date: 20120323
  Receipt Date: 20110401
  Transmission Date: 20120608
  Serious: Yes (Hospitalization)
  Sender: FDA-Public Use
  Company Number: 163-21880-11040289

PATIENT
  Age: 45 Year
  Sex: Male

DRUGS (6)
  1. PULMICORT [Concomitant]
  2. RENAL (NEPHROVITE) [Concomitant]
  3. GRANISETRON [Concomitant]
  4. REVLIMID [Suspect]
     Indication: MULTIPLE MYELOMA
     Dosage: 5 MG, TWICE WEEKLY ON MONDAY AND FRIDAYS, PO ; 5 MG, ONCE WEEKLY, PO
     Route: 048
     Dates: start: 20101215, end: 20110201
  5. PROAIR (FLUTICASONE PROPIONATE) [Concomitant]
  6. SIMVASTATIN [Concomitant]

REACTIONS (1)
  - WHITE BLOOD CELL COUNT DECREASED [None]
